FAERS Safety Report 26207949 (Version 1)
Quarter: 2025Q4

REPORT INFORMATION
  Report Type: Spontaneous
  Country: EU (occurrence: EU)
  Receive Date: 20251229
  Receipt Date: 20251229
  Transmission Date: 20260118
  Serious: Yes (Life-Threatening, Hospitalization)
  Sender: TEVA
  Company Number: EU-TEVA-VS-3407167

PATIENT
  Age: 67 Year
  Sex: Male

DRUGS (1)
  1. DIAZEPAM [Interacting]
     Active Substance: DIAZEPAM
     Indication: Delirium tremens
     Dosage: RECEIVED TOTAL DOSE OF 370MG DURING FIRST WEEK OF HOSPITALISATION
     Route: 065

REACTIONS (5)
  - Depressed level of consciousness [Recovered/Resolved]
  - Drug level increased [Recovered/Resolved]
  - Drug-disease interaction [Unknown]
  - Drug half-life increased [Recovered/Resolved]
  - Toxicity to various agents [Recovered/Resolved]
